FAERS Safety Report 6698535-4 (Version None)
Quarter: 2010Q2

REPORT INFORMATION
  Report Type: 
  Country: None (occurrence: None)
  Receive Date: 20100427
  Receipt Date: 20100426
  Transmission Date: 20101027
  Serious: Yes (Hospitalization)
  Sender: FDA-Public Use
  Company Number: GXKR2010DE04585

PATIENT
  Age: 68 Year
  Sex: Male
  Weight: 104 kg

DRUGS (3)
  1. RAMIPRIL [Suspect]
     Indication: HYPERTENSION
     Dosage: 5 MG, QD
     Route: 048
     Dates: start: 20090101
  2. COLCHYSAT [Concomitant]
  3. AMLODIPINE [Concomitant]

REACTIONS (1)
  - DERMATOMYOSITIS [None]
